FAERS Safety Report 20031724 (Version 1)
Quarter: 2021Q4

REPORT INFORMATION
  Report Type: Spontaneous
  Country: GB (occurrence: GB)
  Receive Date: 20211103
  Receipt Date: 20211103
  Transmission Date: 20220303
  Serious: Yes (Hospitalization, Disabling, Other)
  Sender: FDA-Public Use
  Company Number: GB-ABBVIE-21K-167-4141538-00

PATIENT
  Age: 58 Year
  Sex: Female
  Weight: 106.04 kg

DRUGS (9)
  1. EPILIM [Suspect]
     Active Substance: VALPROATE SODIUM
     Indication: Temporal lobe epilepsy
     Dosage: REDUCED TO 1000 MG P.D. FROM AUTUMN 2.017 TO PRESENT AS CHANGED
     Route: 048
     Dates: start: 20160113
  2. OMEPRAZOLE [Concomitant]
     Active Substance: OMEPRAZOLE
     Indication: Product used for unknown indication
  3. VITAMINS NOS [Concomitant]
     Active Substance: VITAMINS
     Indication: Product used for unknown indication
  4. TRIHEXYPHENIDYL [Concomitant]
     Active Substance: TRIHEXYPHENIDYL
     Indication: Product used for unknown indication
  5. VERAPAMIL [Concomitant]
     Active Substance: VERAPAMIL HYDROCHLORIDE
     Indication: Product used for unknown indication
  6. ARIPIPRAZOLE [Concomitant]
     Active Substance: ARIPIPRAZOLE
     Indication: Product used for unknown indication
  7. BIOTIN [Concomitant]
     Active Substance: BIOTIN
     Indication: Product used for unknown indication
  8. FUROSEMIDE [Concomitant]
     Active Substance: FUROSEMIDE
     Indication: Product used for unknown indication
  9. ELEUTHERO\HERBALS [Concomitant]
     Active Substance: ELEUTHERO\HERBALS
     Indication: Product used for unknown indication

REACTIONS (13)
  - Blister [Recovering/Resolving]
  - Skin discolouration [Unknown]
  - Wound secretion [Unknown]
  - Chills [Unknown]
  - Supraventricular tachycardia [Unknown]
  - Arrhythmia [Unknown]
  - Body temperature decreased [Unknown]
  - Abdominal distension [Unknown]
  - Limb discomfort [Unknown]
  - Raynaud^s phenomenon [Recovered/Resolved]
  - Peripheral swelling [Unknown]
  - Obesity [Unknown]
  - Blister [Recovering/Resolving]

NARRATIVE: CASE EVENT DATE: 20180701
